FAERS Safety Report 6204569-6 (Version None)
Quarter: 2009Q2

REPORT INFORMATION
  Report Type: 
  Country: None (occurrence: None)
  Receive Date: 20090527
  Receipt Date: 20090513
  Transmission Date: 20091009
  Serious: Yes (Hospitalization)
  Sender: FDA-Public Use
  Company Number: US-PFIZER INC-2009212777

PATIENT
  Sex: Female
  Weight: 61 kg

DRUGS (6)
  1. AMLODIPINE BESILATE, ATORVASTATIN CALCIUM [Suspect]
     Indication: HYPERTENSION
     Dosage: 2.5 MG/20 MG, 1X/DAY
     Route: 048
     Dates: start: 20070124
  2. AMLODIPINE BESILATE, ATORVASTATIN CALCIUM [Suspect]
     Dosage: 20 MG, 1X/DAY
     Route: 048
     Dates: start: 20070124
  3. LABETALOL [Concomitant]
     Dosage: UNK
     Dates: start: 20051230
  4. EFFEXOR [Concomitant]
     Dosage: UNK
  5. HECTOROL [Concomitant]
     Dosage: UNK
     Dates: start: 20070116
  6. ACETYLSALICYLIC ACID [Concomitant]
     Dosage: UNK
     Dates: start: 20051230

REACTIONS (1)
  - CONTUSION [None]
